FAERS Safety Report 25273112 (Version 1)
Quarter: 2025Q2

REPORT INFORMATION
  Report Type: Report from Study
  Country: JP (occurrence: JP)
  Receive Date: 20250506
  Receipt Date: 20250506
  Transmission Date: 20250716
  Serious: Yes (Death)
  Sender: PFIZER
  Company Number: JP-PFIZER INC-PV202500053411

PATIENT

DRUGS (3)
  1. DOCETAXEL [Suspect]
     Active Substance: DOCETAXEL
     Indication: Oesophageal carcinoma
     Dosage: ON DAY 1
  2. CISPLATIN [Suspect]
     Active Substance: CISPLATIN
     Indication: Oesophageal carcinoma
     Dosage: ON DAY 1
  3. FLUOROURACIL [Suspect]
     Active Substance: FLUOROURACIL
     Indication: Oesophageal carcinoma
     Dosage: ON DAYS 1-5

REACTIONS (2)
  - Sepsis [Fatal]
  - Pneumonia fungal [Fatal]
